FAERS Safety Report 7914521-8 (Version None)
Quarter: 2011Q4

REPORT INFORMATION
  Report Type: 
  Country: None (occurrence: None)
  Receive Date: 20111115
  Receipt Date: 20111102
  Transmission Date: 20120403
  Serious: Yes (Other)
  Sender: FDA-Public Use
  Company Number: PHHY2009CA36621

PATIENT
  Sex: Female

DRUGS (16)
  1. KETOROLAC TROMETHAMINE [Concomitant]
     Dosage: 10 MG, TID
  2. LEVOTHYROXINE SODIUM [Concomitant]
     Dosage: 100 MG
  3. ZOCOR [Concomitant]
     Dosage: 20 MG
  4. NSAID'S [Concomitant]
  5. AVALIDE [Concomitant]
     Dosage: 330/25 MG
  6. LANTUS [Concomitant]
     Dosage: 36 IU, UNK
  7. MONOCOR [Concomitant]
     Dosage: 10 MG, QD
  8. STATINS [Concomitant]
  9. RABEPRAZOLE SODIUM [Concomitant]
     Dosage: 20 MG, QD
  10. ACTONEL [Concomitant]
     Dosage: 35 MG WEEKLY
  11. GLYBURIDE [Concomitant]
     Dosage: 5 MG, TID
  12. RASILEZ [Suspect]
     Indication: HYPERTENSION
     Dosage: 300 MG
     Route: 048
     Dates: start: 20090114, end: 20090407
  13. LYRICA [Concomitant]
     Dosage: 75 MG
  14. CELEXA [Concomitant]
     Dosage: 30 MG, QD
  15. METFORMIN HCL [Concomitant]
     Dosage: 2500
  16. THIAZIDE DIURETICS [Concomitant]

REACTIONS (3)
  - ALANINE AMINOTRANSFERASE INCREASED [None]
  - ASPARTATE AMINOTRANSFERASE INCREASED [None]
  - HEPATIC ENZYME INCREASED [None]
